FAERS Safety Report 21522287 (Version 6)
Quarter: 2023Q4

REPORT INFORMATION
  Report Type: Spontaneous
  Country: CA (occurrence: CA)
  Receive Date: 20221028
  Receipt Date: 20231017
  Transmission Date: 20240109
  Serious: Yes (Other)
  Sender: FDA-Public Use
  Company Number: CA-CELLTRION INC.-2021CA013622

PATIENT

DRUGS (13)
  1. INFLECTRA [Suspect]
     Active Substance: INFLIXIMAB-DYYB
     Indication: Crohn^s disease
     Dosage: 10 MG/KG,WEEK 0,2,6, THEN 5MG/KG EVERY 8 WEEKS
     Route: 042
     Dates: start: 20220711
  2. INFLECTRA [Suspect]
     Active Substance: INFLIXIMAB-DYYB
     Dosage: 10 MG/KG, FOR INDUCTION WEEK 0,2,6
     Route: 042
     Dates: start: 20220711
  3. INFLECTRA [Suspect]
     Active Substance: INFLIXIMAB-DYYB
     Dosage: 10 MG/KG,WEEK 0,2,6 - THEN 5MG/KG Q 8 WEEKS (RECEIVED 595 MG)
     Route: 042
     Dates: start: 20220822
  4. INFLECTRA [Suspect]
     Active Substance: INFLIXIMAB-DYYB
     Dosage: 10 MG/KG,WEEK 0,2,6 - THEN 5MG/KG Q 8 WEEKS
     Route: 042
     Dates: start: 20221019
  5. INFLECTRA [Suspect]
     Active Substance: INFLIXIMAB-DYYB
     Dosage: 10 MG/KG,WEEK 0,2,6 - THEN 5MG/KG Q 8 WEEKS
     Route: 042
     Dates: start: 20221214
  6. INFLECTRA [Suspect]
     Active Substance: INFLIXIMAB-DYYB
     Dosage: 325MG (5MG/KG), Q8 WEEKS
     Route: 042
     Dates: start: 20230209
  7. INFLECTRA [Suspect]
     Active Substance: INFLIXIMAB-DYYB
     Dosage: 325MG (5MG/KG), Q8 WEEKS
     Route: 042
     Dates: start: 20230209
  8. INFLECTRA [Suspect]
     Active Substance: INFLIXIMAB-DYYB
     Dosage: 325MG (5MG/KG), Q8 WEEKS
     Route: 042
     Dates: start: 20230209
  9. INFLECTRA [Suspect]
     Active Substance: INFLIXIMAB-DYYB
     Dosage: 335 MG (5MG/KG EVERY 8 WEEKS)
     Route: 042
     Dates: start: 20230411
  10. INFLECTRA [Suspect]
     Active Substance: INFLIXIMAB-DYYB
     Dosage: 5 MG/KG, EVERY 8 WEEKS
     Route: 042
     Dates: start: 20230606
  11. INFLECTRA [Suspect]
     Active Substance: INFLIXIMAB-DYYB
     Dosage: 330 MG (5 MG/KG), 9 WEEKS AND 1 DAY, (PRESCRIBED TREATMENT EVERY 8 WEEKS)
     Route: 042
     Dates: start: 20230809
  12. INFLECTRA [Suspect]
     Active Substance: INFLIXIMAB-DYYB
     Dosage: 5 MG/KG,  EVERY 8 WEEK , (335 MG AFTER 8 WEEKS AND 6 DAYS)
     Route: 042
     Dates: start: 20231010
  13. PREDNISONE [Concomitant]
     Active Substance: PREDNISONE
     Dosage: 1 DF

REACTIONS (13)
  - Haematochezia [Not Recovered/Not Resolved]
  - Off label use [Unknown]
  - Intentional product use issue [Unknown]
  - Off label use [Unknown]
  - Inappropriate schedule of product administration [Unknown]
  - Pallor [Recovering/Resolving]
  - Skin discolouration [Recovering/Resolving]
  - Nausea [Recovering/Resolving]
  - Hyperhidrosis [Recovering/Resolving]
  - Chills [Recovering/Resolving]
  - Nasopharyngitis [Recovered/Resolved]
  - Dizziness [Recovering/Resolving]
  - Condition aggravated [Recovered/Resolved]

NARRATIVE: CASE EVENT DATE: 20220711
